FAERS Safety Report 10044950 (Version 1)
Quarter: 2014Q1

REPORT INFORMATION
  Report Type: Spontaneous
  Country: US (occurrence: None)
  Receive Date: 20140306
  Receipt Date: 20140306
  Transmission Date: 20141002
  Serious: Yes (Hospitalization)
  Sender: FDA-Public Use
  Company Number: 163-21880-13053132

PATIENT
  Age: 73 Year
  Sex: Female
  Weight: 79.38 kg

DRUGS (11)
  1. REVLIMID [Suspect]
     Indication: PLASMA CELL MYELOMA
     Route: 048
     Dates: start: 201212
  2. JANUVIA (SITAGLIPTIN PHOSPHATE) [Concomitant]
  3. AMLODIPINE (AMLODIPINE) [Concomitant]
  4. FAMCICLOVIR (FAMCICLOVIR) [Concomitant]
  5. SYNTHROID (LEVOTHYROXINE SODIUM) [Concomitant]
  6. LANTUS (INSULIN GLARGINE) [Concomitant]
  7. TRAMADOL (TRAMADOL) [Concomitant]
  8. OMEPRAZOLE (OMEPRAZOLE) [Concomitant]
  9. WARFARIN (WARFARIN) [Concomitant]
  10. VITAMIN D2 (ERGOCALCIFEROL) [Concomitant]
  11. DEXAMETHASONE (DEXAMETHASONE) [Concomitant]

REACTIONS (1)
  - Hypotension [None]
